FAERS Safety Report 14758079 (Version 1)
Quarter: 2018Q2

REPORT INFORMATION
  Report Type: Spontaneous
  Country: US (occurrence: US)
  Receive Date: 20180413
  Receipt Date: 20180413
  Transmission Date: 20180711
  Serious: No
  Sender: FDA-Public Use
  Company Number: US-NOVOPROD-581633

PATIENT
  Age: 57 Year
  Sex: Female
  Weight: 57.6 kg

DRUGS (2)
  1. TRESIBA [Suspect]
     Active Substance: INSULIN DEGLUDEC
     Dosage: 50 U, BID
     Route: 058
  2. TRESIBA [Suspect]
     Active Substance: INSULIN DEGLUDEC
     Indication: DIABETES MELLITUS
     Dosage: 50 U, BID
     Route: 058
     Dates: start: 201711

REACTIONS (5)
  - Diarrhoea [Recovered/Resolved]
  - Hot flush [Unknown]
  - Off label use [Not Recovered/Not Resolved]
  - Dizziness [Unknown]
  - Flatulence [Recovered/Resolved]

NARRATIVE: CASE EVENT DATE: 201711
